FAERS Safety Report 7018505-6 (Version None)
Quarter: 2010Q3

REPORT INFORMATION
  Report Type: 
  Country: None (occurrence: None)
  Receive Date: 20100928
  Receipt Date: 20100923
  Transmission Date: 20110219
  Serious: Yes (Other)
  Sender: FDA-Public Use
  Company Number: US-ABBOTT-10P-163-0649490-00

PATIENT
  Sex: Female

DRUGS (9)
  1. VICODIN [Suspect]
     Indication: PAIN
  2. PERCOCET [Suspect]
     Indication: PAIN
  3. NEURONTIN [Suspect]
     Indication: PAIN
     Route: 048
  4. DARVOCET-N 100 [Suspect]
     Indication: PAIN
  5. PLAVIX [Suspect]
     Indication: CORONARY ARTERY BYPASS
     Route: 048
     Dates: start: 20001106
  6. ASPIRIN [Concomitant]
     Indication: PRODUCT USED FOR UNKNOWN INDICATION
     Route: 048
  7. KAPIDEX [Concomitant]
     Indication: PRODUCT USED FOR UNKNOWN INDICATION
  8. BLOOD PRESSURE PILL NOS [Concomitant]
     Indication: PRODUCT USED FOR UNKNOWN INDICATION
  9. DEXLANSOPRAZOLE [Concomitant]
     Indication: PRODUCT USED FOR UNKNOWN INDICATION

REACTIONS (10)
  - ABDOMINAL PAIN [None]
  - ABDOMINAL PAIN UPPER [None]
  - ARRHYTHMIA [None]
  - ASTHENIA [None]
  - CONSTIPATION [None]
  - DECREASED APPETITE [None]
  - GASTRIC DISORDER [None]
  - NAUSEA [None]
  - OSTEOARTHRITIS [None]
  - WHITE BLOOD CELL COUNT DECREASED [None]
